FAERS Safety Report 6557669-5 (Version None)
Quarter: 2010Q1

REPORT INFORMATION
  Report Type: 
  Country: None (occurrence: None)
  Receive Date: 20100129
  Receipt Date: 20091001
  Transmission Date: 20100710
  Serious: Yes (Other)
  Sender: FDA-Public Use
  Company Number: A0809952A

PATIENT

DRUGS (1)
  1. COMBIVIR [Suspect]
     Indication: HIV INFECTION

REACTIONS (1)
  - ANAEMIA [None]
